FAERS Safety Report 20767200 (Version 2)
Quarter: 2022Q2

REPORT INFORMATION
  Report Type: Spontaneous
  Country: BE (occurrence: BE)
  Receive Date: 20220429
  Receipt Date: 20220614
  Transmission Date: 20220720
  Serious: Yes (Life-Threatening, Hospitalization, Other)
  Sender: FDA-Public Use
  Company Number: BE-BIOVITRUM-2022BE05501

PATIENT
  Age: 58 Year
  Sex: Male

DRUGS (8)
  1. DOPTELET [Suspect]
     Active Substance: AVATROMBOPAG MALEATE
     Indication: Immune thrombocytopenia
     Dosage: 20 MG 1 EVERY DAY, 40 MG 1 EVERY DAY, SWITCHED DAILY (1 - 2 - 1 - 2 - ...)
     Route: 048
     Dates: start: 20220324, end: 20220401
  2. ASPIRIN [Concomitant]
     Active Substance: ASPIRIN
     Route: 048
  3. ATORVASTATIN [Concomitant]
     Active Substance: ATORVASTATIN
     Route: 048
  4. CALCIUM CARBONATE\CHOLECALCIFEROL [Concomitant]
     Active Substance: CALCIUM CARBONATE\CHOLECALCIFEROL
     Dosage: 1000MG/880IE
     Route: 048
  5. FENPROCOUOMON [Concomitant]
     Route: 048
  6. LOSARTAN [Concomitant]
     Active Substance: LOSARTAN
     Route: 048
  7. NEBIVOLOL [Concomitant]
     Active Substance: NEBIVOLOL
     Route: 048
  8. PANTOMED [Concomitant]
     Route: 048

REACTIONS (6)
  - Antiphospholipid syndrome [Recovered/Resolved with Sequelae]
  - Thrombotic microangiopathy [Recovered/Resolved with Sequelae]
  - Renal failure [Recovered/Resolved with Sequelae]
  - Thrombocytopenia [Unknown]
  - Glomerular filtration rate decreased [Unknown]
  - Microalbuminuria [Unknown]

NARRATIVE: CASE EVENT DATE: 20220401
